FAERS Safety Report 21174133 (Version 2)
Quarter: 2022Q3

REPORT INFORMATION
  Report Type: Spontaneous
  Country: DE (occurrence: DE)
  Receive Date: 20220804
  Receipt Date: 20220817
  Transmission Date: 20221027
  Serious: Yes (Other)
  Sender: FDA-Public Use
  Company Number: DE-TEVA-2022-DE-2060157

PATIENT
  Age: 30 Year
  Sex: Male

DRUGS (12)
  1. DOXORUBICIN [Suspect]
     Active Substance: DOXORUBICIN
     Indication: Hereditary motor and sensory neuropathy
     Dosage: BEACOPP REGIMEN DAY 1
     Route: 065
  2. DOXORUBICIN [Suspect]
     Active Substance: DOXORUBICIN
     Indication: Hodgkin^s disease
  3. ETOPOSIDE [Suspect]
     Active Substance: ETOPOSIDE
     Indication: Hereditary motor and sensory neuropathy
     Dosage: BEACOPP REGIMEN DAY 1-3
     Route: 065
  4. ETOPOSIDE [Suspect]
     Active Substance: ETOPOSIDE
     Indication: Hodgkin^s disease
  5. BLEOMYCIN [Suspect]
     Active Substance: BLEOMYCIN SULFATE
     Indication: Hereditary motor and sensory neuropathy
     Dosage: BEACOPP REGIMEN ON DAY 8
     Route: 065
  6. BLEOMYCIN [Suspect]
     Active Substance: BLEOMYCIN SULFATE
     Indication: Hodgkin^s disease
  7. CYCLOPHOSPHAMIDE [Suspect]
     Active Substance: CYCLOPHOSPHAMIDE
     Indication: Hereditary motor and sensory neuropathy
     Dosage: BEACOPP REGIMEN DAY 1
     Route: 065
  8. CYCLOPHOSPHAMIDE [Suspect]
     Active Substance: CYCLOPHOSPHAMIDE
     Indication: Hodgkin^s disease
  9. PROCARBAZINE [Suspect]
     Active Substance: PROCARBAZINE
     Indication: Hereditary motor and sensory neuropathy
     Dosage: BEACOPP REGIMEN DAY 1-7
     Route: 065
  10. PROCARBAZINE [Suspect]
     Active Substance: PROCARBAZINE
     Indication: Hodgkin^s disease
  11. PREDNISONE [Suspect]
     Active Substance: PREDNISONE
     Indication: Hereditary motor and sensory neuropathy
     Dosage: BEACOPP REGIMEN DAY 1-14
     Route: 065
  12. PREDNISONE [Suspect]
     Active Substance: PREDNISONE
     Indication: Hodgkin^s disease

REACTIONS (1)
  - Neurotoxicity [Recovering/Resolving]
